FAERS Safety Report 5336776-9 (Version None)
Quarter: 2007Q2

REPORT INFORMATION
  Report Type: 
  Country: None (occurrence: None)
  Receive Date: 20070529
  Receipt Date: 20070517
  Transmission Date: 20071010
  Serious: Yes (Hospitalization)
  Sender: FDA-Public Use
  Company Number: JP-ROCHE-492317

PATIENT
  Age: 10 Year
  Sex: Male

DRUGS (3)
  1. TAMIFLU [Suspect]
     Dosage: FORM:DRY SYRUP.
     Route: 048
     Dates: start: 20070304
  2. CISDYNE [Concomitant]
     Route: 048
  3. CALONAL [Concomitant]
     Dosage: TAKEN AS NEEDED.
     Route: 048

REACTIONS (4)
  - AMNESIA [None]
  - DELIRIUM [None]
  - NIGHTMARE [None]
  - VOMITING [None]
